FAERS Safety Report 23856454 (Version 1)
Quarter: 2024Q2

REPORT INFORMATION
  Report Type: Spontaneous
  Country: US (occurrence: US)
  Receive Date: 20240515
  Receipt Date: 20240515
  Transmission Date: 20240715
  Serious: Yes (Hospitalization)
  Sender: FDA-Public Use
  Company Number: US-HALEON-2173234

PATIENT
  Age: 85 Year
  Sex: Female

DRUGS (1)
  1. ROBITUSSIN COUGH AND CHEST CONGESTION DM [Suspect]
     Active Substance: DEXTROMETHORPHAN HYDROBROMIDE\GUAIFENESIN
     Indication: Sinus disorder

REACTIONS (2)
  - Atrial fibrillation [Recovered/Resolved]
  - Product use in unapproved indication [Unknown]
